FAERS Safety Report 10465123 (Version 2)
Quarter: 2014Q3

REPORT INFORMATION
  Report Type: Report from Study
  Country: US (occurrence: US)
  Receive Date: 20140919
  Receipt Date: 20140919
  Transmission Date: 20150326
  Serious: Yes (Hospitalization, Other)
  Sender: FDA-Public Use
  Company Number: US-SA-2014SA049989

PATIENT
  Age: 39 Year
  Sex: Female

DRUGS (2)
  1. AUBAGIO [Suspect]
     Active Substance: TERIFLUNOMIDE
     Indication: MULTIPLE SCLEROSIS
     Route: 048
     Dates: start: 20140805
  2. AUBAGIO [Suspect]
     Active Substance: TERIFLUNOMIDE
     Indication: MULTIPLE SCLEROSIS
     Route: 048
     Dates: start: 20140411, end: 201407

REACTIONS (11)
  - Pollakiuria [Unknown]
  - Abdominal pain [Unknown]
  - Fatigue [Recovered/Resolved]
  - Limb discomfort [Unknown]
  - Progressive multiple sclerosis [Unknown]
  - Feeling abnormal [Unknown]
  - Pain [Unknown]
  - General physical health deterioration [Unknown]
  - Fall [Unknown]
  - Pain in extremity [Unknown]
  - Amnesia [Unknown]

NARRATIVE: CASE EVENT DATE: 201405
